FAERS Safety Report 19193730 (Version 1)
Quarter: 2021Q2

REPORT INFORMATION
  Report Type: Spontaneous
  Country: US (occurrence: US)
  Receive Date: 20210428
  Receipt Date: 20210428
  Transmission Date: 20210717
  Serious: Yes (Other)
  Sender: FDA-Public Use
  Company Number: None

PATIENT
  Age: 66 Year
  Sex: Female
  Weight: 80.1 kg

DRUGS (15)
  1. JARDIANCE [Concomitant]
     Active Substance: EMPAGLIFLOZIN
  2. SIMVASTATIN. [Concomitant]
     Active Substance: SIMVASTATIN
  3. SYNTHROID [Concomitant]
     Active Substance: LEVOTHYROXINE SODIUM
  4. MONTELUKAST [Concomitant]
     Active Substance: MONTELUKAST SODIUM
  5. CETIRIZINE [Concomitant]
     Active Substance: CETIRIZINE HYDROCHLORIDE
  6. LOSARTAN. [Concomitant]
     Active Substance: LOSARTAN
  7. MULTIVITAMIN [Concomitant]
     Active Substance: VITAMINS
  8. BIOTIN [Concomitant]
     Active Substance: BIOTIN
  9. TRULICITY [Suspect]
     Active Substance: DULAGLUTIDE
     Indication: TYPE 2 DIABETES MELLITUS
     Dosage: ?          QUANTITY:1 INJECTION(S);OTHER FREQUENCY:1 A WEEK;OTHER ROUTE:INTO BELLY FAT?
     Dates: start: 20210416, end: 20210423
  10. APIXABAN [Concomitant]
     Active Substance: APIXABAN
  11. VALACYCLOVIR [Concomitant]
     Active Substance: VALACYCLOVIR HYDROCHLORIDE
  12. GABAPENTIN. [Concomitant]
     Active Substance: GABAPENTIN
  13. VITAMIN D [Concomitant]
     Active Substance: VITAMIN D NOS
  14. INULIN [Concomitant]
     Active Substance: INULIN
  15. OLOPATADINE. [Concomitant]
     Active Substance: OLOPATADINE

REACTIONS (19)
  - Gastrooesophageal reflux disease [None]
  - Chills [None]
  - Tremor [None]
  - Loss of personal independence in daily activities [None]
  - Fatigue [None]
  - Asthenia [None]
  - Dizziness [None]
  - Pyrexia [None]
  - Abdominal pain upper [None]
  - Parosmia [None]
  - Somnolence [None]
  - Nausea [None]
  - Feeling abnormal [None]
  - Headache [None]
  - Dysphagia [None]
  - Hypophagia [None]
  - Rash [None]
  - Arthralgia [None]
  - Malaise [None]

NARRATIVE: CASE EVENT DATE: 20210423
